FAERS Safety Report 9509676 (Version 1)
Quarter: 2013Q3

REPORT INFORMATION
  Report Type: Spontaneous
  Country: US (occurrence: US)
  Receive Date: 20130909
  Receipt Date: 20130909
  Transmission Date: 20140515
  Serious: No
  Sender: FDA-Public Use
  Company Number: US-BRISTOL-MYERS SQUIBB COMPANY-17308735

PATIENT
  Age: 14 Year
  Sex: Male
  Weight: 48.52 kg

DRUGS (3)
  1. ABILIFY [Suspect]
     Indication: OBSESSIVE-COMPULSIVE DISORDER
  2. ABILIFY [Suspect]
     Indication: AUTISM
  3. GUANFACINE [Concomitant]

REACTIONS (3)
  - Drug ineffective [Unknown]
  - Insomnia [Unknown]
  - Decreased appetite [Unknown]
